FAERS Safety Report 9358570 (Version 1)
Quarter: 2013Q2

REPORT INFORMATION
  Report Type: Not Available
  Country: GB (occurrence: GB)
  Receive Date: 20130620
  Receipt Date: 20130620
  Transmission Date: 20140414
  Serious: Yes (Other)
  Sender: FDA-Public Use
  Company Number: GB-PURDUE-USA-2013-0103653

PATIENT
  Age: 26 Year
  Sex: Female

DRUGS (36)
  1. TRAMADOL (SIMILAR TO NDA 21-745) [Suspect]
     Indication: PAIN
  2. TRAMADOL (SIMILAR TO NDA 21-745) [Suspect]
     Indication: HYPERMOBILITY SYNDROME
  3. TRAMADOL (SIMILAR TO NDA 21-745) [Suspect]
     Indication: OSTEOARTHRITIS
  4. TRAMADOL (SIMILAR TO NDA 21-745) [Suspect]
     Indication: OSTEOPOROSIS
  5. TRAMADOL (SIMILAR TO NDA 21-745) [Suspect]
     Indication: MYALGIA
  6. TRAMADOL (SIMILAR TO NDA 21-745) [Suspect]
     Indication: RHEUMATOID ARTHRITIS
  7. CODEINE PHOSPHATE [Suspect]
     Indication: PAIN
  8. CODEINE PHOSPHATE [Suspect]
     Indication: MYALGIA
  9. CODEINE PHOSPHATE [Suspect]
     Indication: OSTEOPOROSIS
  10. CODEINE PHOSPHATE [Suspect]
     Indication: OSTEOARTHRITIS
  11. CODEINE PHOSPHATE [Suspect]
     Indication: RHEUMATOID ARTHRITIS
  12. CODEINE PHOSPHATE [Suspect]
     Indication: HYPERMOBILITY SYNDROME
  13. CO-CODAMOL [Suspect]
     Indication: PAIN
  14. CO-CODAMOL [Suspect]
     Indication: HYPERMOBILITY SYNDROME
  15. CO-CODAMOL [Suspect]
     Indication: OSTEOARTHRITIS
  16. CO-CODAMOL [Suspect]
     Indication: OSTEOPOROSIS
  17. CO-CODAMOL [Suspect]
     Indication: MYALGIA
  18. CO-CODAMOL [Suspect]
     Indication: RHEUMATOID ARTHRITIS
  19. NAPROXEN [Suspect]
     Indication: PAIN
  20. NAPROXEN [Suspect]
     Indication: MYALGIA
  21. NAPROXEN [Suspect]
     Indication: RHEUMATOID ARTHRITIS
  22. NAPROXEN [Suspect]
     Indication: OSTEOARTHRITIS
  23. NAPROXEN [Suspect]
     Indication: HYPERMOBILITY SYNDROME
  24. NAPROXEN [Suspect]
     Indication: OSTEOPOROSIS
  25. DICLOFENAC [Suspect]
     Indication: PAIN
  26. DICLOFENAC [Suspect]
     Indication: HYPERMOBILITY SYNDROME
  27. DICLOFENAC [Suspect]
     Indication: OSTEOARTHRITIS
  28. DICLOFENAC [Suspect]
     Indication: OSTEOPOROSIS
  29. DICLOFENAC [Suspect]
     Indication: MYALGIA
  30. DICLOFENAC [Suspect]
     Indication: RHEUMATOID ARTHRITIS
  31. LEFLUNOMIDE [Suspect]
     Indication: PAIN
  32. LEFLUNOMIDE [Suspect]
     Indication: HYPERMOBILITY SYNDROME
  33. LEFLUNOMIDE [Suspect]
     Indication: OSTEOARTHRITIS
  34. LEFLUNOMIDE [Suspect]
     Indication: OSTEOPOROSIS
  35. LEFLUNOMIDE [Suspect]
     Indication: MYALGIA
  36. LEFLUNOMIDE [Suspect]
     Indication: RHEUMATOID ARTHRITIS

REACTIONS (2)
  - Suicidal ideation [Unknown]
  - Drug ineffective [Unknown]
